FAERS Safety Report 7681102-3 (Version None)
Quarter: 2011Q3

REPORT INFORMATION
  Report Type: 
  Country: None (occurrence: None)
  Receive Date: 20110804
  Receipt Date: 20110726
  Transmission Date: 20111222
  Serious: Yes (Hospitalization, Other)
  Sender: FDA-Public Use
  Company Number: 2011SP004035

PATIENT
  Age: 26 Year
  Sex: Female

DRUGS (6)
  1. LORAZEPAM [Concomitant]
  2. BROTIZOLAM [Concomitant]
  3. MIRTAZAPINE [Suspect]
     Indication: DEPRESSION
     Dosage: 3.75 MG;QD;PO 15 MG;QD;PO 7.5 MG;QD;PO 15 MG;QD;PO
     Route: 048
     Dates: start: 20101018, end: 20101022
  4. MIRTAZAPINE [Suspect]
     Indication: DEPRESSION
     Dosage: 3.75 MG;QD;PO 15 MG;QD;PO 7.5 MG;QD;PO 15 MG;QD;PO
     Route: 048
     Dates: start: 20101127, end: 20101207
  5. MIRTAZAPINE [Suspect]
     Indication: DEPRESSION
     Dosage: 3.75 MG;QD;PO 15 MG;QD;PO 7.5 MG;QD;PO 15 MG;QD;PO
     Route: 048
     Dates: start: 20101030, end: 20101126
  6. MIRTAZAPINE [Suspect]
     Indication: DEPRESSION
     Dosage: 3.75 MG;QD;PO 15 MG;QD;PO 7.5 MG;QD;PO 15 MG;QD;PO
     Route: 048
     Dates: start: 20101023, end: 20101029

REACTIONS (4)
  - JOB DISSATISFACTION [None]
  - ABNORMAL BEHAVIOUR [None]
  - SOMNOLENCE [None]
  - INCORRECT DOSE ADMINISTERED [None]
